FAERS Safety Report 24168244 (Version 1)
Quarter: 2024Q3

REPORT INFORMATION
  Report Type: Spontaneous
  Country: US (occurrence: US)
  Receive Date: 20240802
  Receipt Date: 20240802
  Transmission Date: 20241016
  Serious: Yes (Other)
  Sender: ALCON
  Company Number: US-ALCON LABORATORIES-ALC2024US003548

PATIENT
  Age: 28 Year
  Sex: Male

DRUGS (15)
  1. PROPARACAINE HYDROCHLORIDE [Suspect]
     Active Substance: PROPARACAINE HYDROCHLORIDE
     Indication: Eye pain
     Dosage: EVERY 6 HR OD
     Route: 047
  2. PROPARACAINE HYDROCHLORIDE [Suspect]
     Active Substance: PROPARACAINE HYDROCHLORIDE
     Indication: Conjunctival hyperaemia
  3. PROPARACAINE HYDROCHLORIDE [Suspect]
     Active Substance: PROPARACAINE HYDROCHLORIDE
     Indication: Corneal abrasion
  4. PROPARACAINE HYDROCHLORIDE [Suspect]
     Active Substance: PROPARACAINE HYDROCHLORIDE
     Indication: Lacrimation increased
  5. PROPARACAINE HYDROCHLORIDE [Suspect]
     Active Substance: PROPARACAINE HYDROCHLORIDE
     Indication: Photophobia
  6. POLYMYXIN B [Suspect]
     Active Substance: POLYMYXIN B
     Indication: Eye pain
     Route: 047
  7. POLYMYXIN B [Suspect]
     Active Substance: POLYMYXIN B
     Indication: Conjunctival hyperaemia
  8. POLYMYXIN B [Suspect]
     Active Substance: POLYMYXIN B
     Indication: Corneal abrasion
  9. POLYMYXIN B [Suspect]
     Active Substance: POLYMYXIN B
     Indication: Lacrimation increased
  10. POLYMYXIN B [Suspect]
     Active Substance: POLYMYXIN B
     Indication: Photophobia
  11. TRIMETHOPRIM [Suspect]
     Active Substance: TRIMETHOPRIM
     Indication: Eye pain
     Dosage: UNK
     Route: 047
  12. TRIMETHOPRIM [Suspect]
     Active Substance: TRIMETHOPRIM
     Indication: Conjunctival hyperaemia
  13. TRIMETHOPRIM [Suspect]
     Active Substance: TRIMETHOPRIM
     Indication: Corneal abrasion
  14. TRIMETHOPRIM [Suspect]
     Active Substance: TRIMETHOPRIM
     Indication: Lacrimation increased
  15. TRIMETHOPRIM [Suspect]
     Active Substance: TRIMETHOPRIM
     Indication: Photophobia

REACTIONS (6)
  - Punctate keratitis [Recovered/Resolved]
  - Off label use [Unknown]
  - Eyelid oedema [Recovered/Resolved]
  - Eye pruritus [Recovered/Resolved]
  - Corneal disorder [Recovered/Resolved]
  - Conjunctival hyperaemia [Recovered/Resolved]
